FAERS Safety Report 23977646 (Version 1)
Quarter: 2024Q2

REPORT INFORMATION
  Report Type: Spontaneous
  Country: US (occurrence: None)
  Receive Date: 20240614
  Receipt Date: 20240614
  Transmission Date: 20240716
  Serious: Yes (Hospitalization)
  Sender: FDA-Public Use
  Company Number: None

PATIENT
  Sex: Male

DRUGS (11)
  1. GENOTROPIN [Suspect]
     Active Substance: SOMATROPIN
     Indication: Hypopituitarism
     Dosage: FREQ: INJECT 0.2 MG SUBCUTANEOUSLY EVERY MORNING AND 0.2 MG AT BEDTIME.
     Route: 058
     Dates: start: 20230222
  2. BUT/APAP/CAF CAP [Concomitant]
  3. CLINDAMYCIN HYDROCHLORIDE [Concomitant]
     Active Substance: CLINDAMYCIN HYDROCHLORIDE
  4. CLONAZEPAM TAB 0.5MG [Concomitant]
  5. CLONIDINE TAB 0.1 MG ER [Concomitant]
  6. ELETRIPTAN TAB 40MG [Concomitant]
  7. FENOFIBRATE TAB 160MG [Concomitant]
  8. FENTANYL DIS 12 MCG/HR [Concomitant]
  9. KP VITAMIN D [Concomitant]
  10. LYRICA CAP 25MG [Concomitant]
  11. MORPHINE POW SULFATE [Concomitant]

REACTIONS (4)
  - Concussion [None]
  - Impaired gastric emptying [None]
  - Nausea [None]
  - Eating disorder [None]
